FAERS Safety Report 7565707-6 (Version None)
Quarter: 2011Q2

REPORT INFORMATION
  Report Type: 
  Country: None (occurrence: None)
  Receive Date: 20110616
  Receipt Date: 20110531
  Transmission Date: 20111010
  Serious: Yes (Other)
  Sender: FDA-Public Use
  Company Number: FK201101124

PATIENT
  Age: 16 Year
  Sex: Male

DRUGS (4)
  1. CISPLATIN [Suspect]
     Indication: TESTICULAR GERM CELL CANCER
     Dosage: 20 MG/M2, ON DAYS 1-5
  2. BLEOMYCIN SULFATE [Suspect]
     Indication: TESTICULAR GERM CELL CANCER
     Dosage: 30 MG, ON DAYS 1, 5 AND 15
  3. ETOPOSIDE [Suspect]
     Indication: TESTICULAR GERM CELL CANCER
     Dosage: 100 MG/M2
  4. DEXAMETHASONE [Suspect]
     Indication: TESTICULAR GERM CELL CANCER

REACTIONS (11)
  - TACHYPHRENIA [None]
  - MENTAL STATUS CHANGES [None]
  - STRESS [None]
  - ABNORMAL BEHAVIOUR [None]
  - HEPATIC ENZYME INCREASED [None]
  - FAMILY STRESS [None]
  - PSYCHOTIC DISORDER [None]
  - NEUTROPENIA [None]
  - INSOMNIA [None]
  - GRANDIOSITY [None]
  - RESTLESSNESS [None]
